FAERS Safety Report 5040497-X (Version None)
Quarter: 2006Q2

REPORT INFORMATION
  Report Type: 
  Country: None (occurrence: None)
  Receive Date: 20060630
  Receipt Date: 20060407
  Transmission Date: 20061013
  Serious: Yes (Other)
  Sender: FDA-Public Use
  Company Number: US-ROCHE-443965

PATIENT
  Age: 51 Year
  Sex: Female
  Weight: 79.9 kg

DRUGS (4)
  1. XELODA [Suspect]
     Indication: BREAST CANCER METASTATIC
     Dosage: FOUR PILLS IN THE MORNING AND THREE PILLS IN THE EVENING.
     Route: 048
     Dates: start: 20060310, end: 20060328
  2. XELODA [Suspect]
     Route: 048
  3. XELODA [Suspect]
     Route: 048
     Dates: start: 20060415
  4. DILANTIN [Interacting]
     Route: 065
     Dates: start: 20050915, end: 20060328

REACTIONS (2)
  - CONVULSION [None]
  - DRUG LEVEL INCREASED [None]
